FAERS Safety Report 11025890 (Version 1)
Quarter: 2015Q2

REPORT INFORMATION
  Report Type: Other
  Country: GB (occurrence: GB)
  Receive Date: 20150414
  Receipt Date: 20150414
  Transmission Date: 20150821
  Serious: Yes (Other)
  Sender: FDA-Public Use
  Company Number: GB-MYLANLABS-2015M1010684

PATIENT

DRUGS (1)
  1. DIAZEPAM. [Suspect]
     Active Substance: DIAZEPAM
     Dosage: UNK (TAKEN FOR AROUND ONE YEAR)
     Route: 065

REACTIONS (11)
  - Pain in extremity [Unknown]
  - Malaise [Unknown]
  - Eye disorder [Unknown]
  - Tremor [Unknown]
  - Ear discomfort [Unknown]
  - Brain compression [Unknown]
  - Clumsiness [Unknown]
  - Feeling abnormal [Unknown]
  - Pain [Unknown]
  - Myalgia [Unknown]
  - Arthralgia [Unknown]
